FAERS Safety Report 5822432-7 (Version None)
Quarter: 2008Q3

REPORT INFORMATION
  Report Type: 
  Country: None (occurrence: None)
  Receive Date: 20080725
  Receipt Date: 20080319
  Transmission Date: 20090109
  Serious: No
  Sender: FDA-Public Use
  Company Number: US-AMGEN-KDL261432

PATIENT
  Sex: Female
  Weight: 90.8 kg

DRUGS (1)
  1. PROCRIT [Suspect]
     Indication: ANAEMIA OF MALIGNANT DISEASE
     Dates: start: 20071129

REACTIONS (2)
  - BLOOD COUNT ABNORMAL [None]
  - WHITE BLOOD CELL COUNT DECREASED [None]
